FAERS Safety Report 7688445-8 (Version None)
Quarter: 2011Q3

REPORT INFORMATION
  Report Type: 
  Country: None (occurrence: None)
  Receive Date: 20110817
  Receipt Date: 20110808
  Transmission Date: 20111222
  Serious: Yes (Hospitalization)
  Sender: FDA-Public Use
  Company Number: IT-ROCHE-796286

PATIENT
  Sex: Male

DRUGS (9)
  1. URSODIOL [Concomitant]
  2. AULIN [Suspect]
     Route: 048
     Dates: start: 20110101, end: 20110415
  3. TORADOL [Suspect]
     Dosage: DOSE:40 GTT, FREQUENCY:DAILY, STRENGTH:20MG/ML, FORM:SOLUTION
     Route: 048
     Dates: start: 20110325, end: 20110415
  4. ORUDIS [Suspect]
     Route: 048
     Dates: start: 20110415, end: 20110420
  5. ULTRACET [Concomitant]
  6. EPROSARTAN MESILATE [Concomitant]
  7. ARTHROTEC [Suspect]
     Route: 048
     Dates: start: 20110315, end: 20110325
  8. TENORETIC 100 [Suspect]
     Indication: HYPERTENSION
     Route: 048
     Dates: start: 20060421, end: 20110421
  9. VOLTAREN [Suspect]
     Route: 048
     Dates: start: 20110101, end: 20110415

REACTIONS (2)
  - RETROPERITONEAL FIBROSIS [None]
  - RENAL FAILURE ACUTE [None]
